FAERS Safety Report 14630500 (Version 1)
Quarter: 2018Q1

REPORT INFORMATION
  Report Type: Spontaneous
  Country: US (occurrence: US)
  Receive Date: 20180313
  Receipt Date: 20180313
  Transmission Date: 20180509
  Serious: No
  Sender: FDA-Public Use
  Company Number: None

PATIENT
  Age: 65 Year
  Sex: Male

DRUGS (1)
  1. BOTOX [Suspect]
     Active Substance: ONABOTULINUMTOXINA
     Indication: FACIAL PARALYSIS
     Dosage: INTRAMUSCULARLY  RIGHT EYE EVERY 3 MONTHS
     Route: 030
     Dates: start: 20171009

REACTIONS (2)
  - Eye swelling [None]
  - Drug ineffective [None]

NARRATIVE: CASE EVENT DATE: 20171208
